FAERS Safety Report 16614926 (Version 3)
Quarter: 2019Q3

REPORT INFORMATION
  Report Type: Spontaneous
  Country: US (occurrence: US)
  Receive Date: 20190723
  Receipt Date: 20190926
  Transmission Date: 20191004
  Serious: No
  Sender: FDA-Public Use
  Company Number: US-PFIZER INC-2019311381

PATIENT
  Age: 65 Year
  Sex: Female
  Weight: 122.45 kg

DRUGS (2)
  1. IBRANCE [Suspect]
     Active Substance: PALBOCICLIB
     Indication: BREAST CANCER METASTATIC
     Dosage: 125 MG, CYCLIC: ONCE A DAY WITH FOOD FOR 21 DAYS ON THEN 7 DAYS OFF, REPEAT CYCLE
     Route: 048
     Dates: start: 20190619
  2. LETROZOLE ACCORD [Concomitant]
     Active Substance: LETROZOLE
     Dosage: 2.5 MG, 1X/DAY

REACTIONS (3)
  - Cognitive disorder [Unknown]
  - Fatigue [Unknown]
  - Full blood count decreased [Not Recovered/Not Resolved]
